FAERS Safety Report 9994091 (Version 1)
Quarter: 2014Q1

REPORT INFORMATION
  Report Type: Spontaneous
  Country: FR (occurrence: FR)
  Receive Date: 20140310
  Receipt Date: 20140310
  Transmission Date: 20141002
  Serious: Yes (Death)
  Sender: FDA-Public Use
  Company Number: FR-CELGENEUS-056-50794-14030068

PATIENT
  Sex: Male
  Weight: 80 kg

DRUGS (1)
  1. VIDAZA [Suspect]
     Indication: REFRACTORY ANAEMIA WITH AN EXCESS OF BLASTS
     Dosage: 75 MILLIGRAM/SQ. METER
     Route: 058
     Dates: start: 201001, end: 201006

REACTIONS (2)
  - Acute myeloid leukaemia [Fatal]
  - Arthritis [Unknown]
